FAERS Safety Report 9354012 (Version 3)
Quarter: 2013Q4

REPORT INFORMATION
  Report Type: Spontaneous
  Country: US (occurrence: US)
  Receive Date: 20130618
  Receipt Date: 20131223
  Transmission Date: 20140711
  Serious: Yes (Death, Hospitalization)
  Sender: FDA-Public Use
  Company Number: US-JNJFOC-20130608913

PATIENT
  Age: 28 Year
  Sex: Female
  Weight: 70 kg

DRUGS (10)
  1. IBUPROFEN [Suspect]
     Indication: LIGAMENT SPRAIN
     Dosage: 2400 MG A DAY ON DAY 1 TO 19
     Route: 065
  2. IBUPROFEN [Suspect]
     Indication: CONTUSION
     Dosage: 2400 MG A DAY ON DAY 1 TO 19
     Route: 065
  3. VALDECOXIB [Suspect]
     Indication: LIGAMENT SPRAIN
     Dosage: ON DAYS 76-139
     Route: 065
  4. VALDECOXIB [Suspect]
     Indication: CONTUSION
     Dosage: ON DAYS 76-139
     Route: 065
  5. METAXALONE [Suspect]
     Indication: LIGAMENT SPRAIN
     Route: 065
  6. METAXALONE [Suspect]
     Indication: CONTUSION
     Route: 065
  7. METHOCARBAMOL [Suspect]
     Indication: LIGAMENT SPRAIN
     Route: 065
  8. METHOCARBAMOL [Suspect]
     Indication: CONTUSION
     Route: 065
  9. CYCLOBENZAPRINE [Concomitant]
     Indication: LIGAMENT SPRAIN
     Dosage: 10 MG/NIGHTLY
     Route: 065
  10. CYCLOBENZAPRINE [Concomitant]
     Indication: CONTUSION
     Dosage: 10 MG/NIGHTLY
     Route: 065

REACTIONS (12)
  - Respiratory failure [Fatal]
  - Renal failure [Fatal]
  - Secondary hypertension [Fatal]
  - Haemorrhage intracranial [Fatal]
  - Diabetes mellitus [Fatal]
  - Cardiomyopathy [Fatal]
  - Coma [Fatal]
  - Glomerulonephritis [Unknown]
  - Menorrhagia [Unknown]
  - Toxicity to various agents [Unknown]
  - Drug prescribing error [Unknown]
  - Gastritis [Unknown]
